FAERS Safety Report 9971676 (Version 1)
Quarter: 2014Q1

REPORT INFORMATION
  Report Type: Report from Study
  Country: US (occurrence: US)
  Receive Date: 20140306
  Receipt Date: 20140306
  Transmission Date: 20141002
  Serious: No
  Sender: FDA-Public Use
  Company Number: US-ABBVIE-13P-163-1152237-00

PATIENT
  Age: 25 Year
  Sex: Female

DRUGS (8)
  1. HUMIRA [Suspect]
     Indication: PSORIATIC ARTHROPATHY
     Dates: start: 200912, end: 20100408
  2. HUMIRA [Suspect]
     Dates: start: 20130925
  3. METHOTREXATE [Concomitant]
     Indication: PRODUCT USED FOR UNKNOWN INDICATION
     Dosage: SEVEN PILLS WEEKLY
  4. FOLIC ACID [Concomitant]
     Indication: PRODUCT USED FOR UNKNOWN INDICATION
  5. BENADRYL [Concomitant]
     Indication: INSOMNIA
     Dosage: AT BEDTIME
  6. ZARAH [Concomitant]
     Indication: ENDOMETRIOSIS
  7. CELEXA [Concomitant]
     Indication: PRODUCT USED FOR UNKNOWN INDICATION
     Dosage: 20 MILLIGRAMS DAILY
     Dates: start: 201209
  8. HYDROCODONE W/ACETAMINOPHEN [Concomitant]
     Indication: SPINAL PAIN
     Dosage: 5/325MG, ONE TABLET EVERY SIX HOURS

REACTIONS (3)
  - Endometriosis [Not Recovered/Not Resolved]
  - Incorrect route of drug administration [Unknown]
  - Nausea [Not Recovered/Not Resolved]
